FAERS Safety Report 4724432-7 (Version None)
Quarter: 2005Q3

REPORT INFORMATION
  Report Type: 
  Country: None (occurrence: None)
  Receive Date: 20050721
  Receipt Date: 20050630
  Transmission Date: 20060218
  Serious: Yes (Death, Other)
  Sender: FDA-Public Use
  Company Number: JP_050606819

PATIENT
  Age: 74 Year
  Sex: Male
  Weight: 50 kg

DRUGS (5)
  1. GEMZAR [Suspect]
     Indication: PANCREATIC CARCINOMA STAGE IV
     Dosage: 1200 MG OTHER
     Route: 050
     Dates: start: 20050414, end: 20050427
  2. RADIOTHERAPY [Concomitant]
  3. KYTRIL [Concomitant]
  4. DECADRON [Concomitant]
  5. MORPHINE HCL ELIXIR [Concomitant]

REACTIONS (19)
  - ACUTE RESPIRATORY DISTRESS SYNDROME [None]
  - ATELECTASIS [None]
  - BLOOD BICARBONATE INCREASED [None]
  - BLOOD FIBRINOGEN INCREASED [None]
  - BLOOD PH INCREASED [None]
  - DRUG DOSE OMISSION [None]
  - FIBRIN DEGRADATION PRODUCTS INCREASED [None]
  - NEUTROPHIL PERCENTAGE INCREASED [None]
  - PLATELET COUNT DECREASED [None]
  - PNEUMONIA [None]
  - PO2 DECREASED [None]
  - PO2 INCREASED [None]
  - PYREXIA [None]
  - RENAL FAILURE [None]
  - SEPSIS [None]
  - SEPTIC SHOCK [None]
  - UROBILIN URINE PRESENT [None]
  - WHITE BLOOD CELL COUNT DECREASED [None]
  - WHITE BLOOD CELL COUNT INCREASED [None]
